FAERS Safety Report 8644505 (Version 3)
Quarter: 2012Q4

REPORT INFORMATION
  Report Type: 
  Country: CA (occurrence: CA)
  Receive Date: 20120629
  Receipt Date: 20121015
  Transmission Date: 20130627
  Serious: Yes (Other)
  Sender: FDA-Public Use
  Company Number: CA-ELI_LILLY_AND_COMPANY-CA201206006158

PATIENT
  Age: 47 Year
  Sex: Female

DRUGS (2)
  1. CYMBALTA [Suspect]
     Indication: MAJOR DEPRESSION
     Dosage: 60 mg, qd
     Route: 048
     Dates: start: 20090804, end: 20100304
  2. ATIVAN [Concomitant]
     Dosage: UNK, unknown
     Route: 060
     Dates: start: 20090804, end: 20100304

REACTIONS (3)
  - Blister [Recovered/Resolved]
  - Contusion [Recovered/Resolved]
  - Rash [Recovered/Resolved]
